FAERS Safety Report 11075105 (Version 1)
Quarter: 2015Q2

REPORT INFORMATION
  Report Type: Spontaneous
  Country: US (occurrence: US)
  Receive Date: 20150429
  Receipt Date: 20150429
  Transmission Date: 20150821
  Serious: Yes (Death, Other)
  Sender: FDA-Public Use
  Company Number: US-JNJFOC-20150417106

PATIENT
  Sex: Male
  Weight: 87.3 kg

DRUGS (2)
  1. PROPULSID [Suspect]
     Active Substance: CISAPRIDE
     Indication: PRODUCT USED FOR UNKNOWN INDICATION
     Route: 065
     Dates: start: 20150331, end: 20150407
  2. PROPULSID [Suspect]
     Active Substance: CISAPRIDE
     Indication: PRODUCT USED FOR UNKNOWN INDICATION
     Dosage: MEDICATION NUMBER 550142??REFERENCE NUMBER 4366947
     Route: 065
     Dates: start: 20150317, end: 20150331

REACTIONS (3)
  - Death [Fatal]
  - Incorrect dose administered [Unknown]
  - Sepsis [Unknown]
